FAERS Safety Report 9442181 (Version 1)
Quarter: 2013Q3

REPORT INFORMATION
  Report Type: Report from Study
  Country: ES (occurrence: ES)
  Receive Date: 20130806
  Receipt Date: 20130806
  Transmission Date: 20140515
  Serious: Yes (Death, Hospitalization)
  Sender: FDA-Public Use
  Company Number: ES-GENZYME-CAMP-1001951

PATIENT
  Age: 60 Year
  Sex: Male
  Weight: 95 kg

DRUGS (2)
  1. CAMPATH [Suspect]
     Indication: HAEMATOLOGICAL MALIGNANCY
     Dosage: 10 MG, UNK
     Route: 042
     Dates: start: 20110507, end: 20110511
  2. CAMPATH [Suspect]
     Indication: BONE MARROW RETICULIN FIBROSIS

REACTIONS (2)
  - Death [Fatal]
  - Osteomyelitis fungal [Not Recovered/Not Resolved]
